FAERS Safety Report 6672956-8 (Version None)
Quarter: 2010Q2

REPORT INFORMATION
  Report Type: 
  Country: None (occurrence: None)
  Receive Date: 20100408
  Receipt Date: 20100401
  Transmission Date: 20101027
  Serious: Yes (Hospitalization)
  Sender: FDA-Public Use
  Company Number: A0852991A

PATIENT
  Age: 47 Year
  Sex: Male

DRUGS (5)
  1. RELENZA [Suspect]
     Dosage: 2PUFF UNKNOWN
     Route: 055
     Dates: start: 20100312, end: 20100312
  2. BLOOD PRESSURE MEDICATION [Concomitant]
  3. ALLERGY MEDICATION [Concomitant]
  4. MAGNESIUM [Concomitant]
  5. ASPIRIN [Concomitant]

REACTIONS (5)
  - COUGH [None]
  - CYANOSIS [None]
  - DYSPNOEA [None]
  - HYPERSENSITIVITY [None]
  - OFF LABEL USE [None]
